FAERS Safety Report 9704398 (Version 1)
Quarter: 2013Q4

REPORT INFORMATION
  Report Type: Spontaneous
  Country: US (occurrence: US)
  Receive Date: 20131122
  Receipt Date: 20131122
  Transmission Date: 20140711
  Serious: No
  Sender: FDA-Public Use
  Company Number: US-MYLANLABS-2013S1015905

PATIENT
  Age: 26 Year
  Sex: Female
  Weight: 72.58 kg

DRUGS (1)
  1. CLONAZEPAM TABLETS, USP [Suspect]
     Indication: PANIC ATTACK
     Dosage: 0.5MG-1.0MG PRN
     Route: 048
     Dates: start: 2013

REACTIONS (6)
  - Drug ineffective [Recovered/Resolved]
  - Panic attack [Recovered/Resolved]
  - Tremor [Not Recovered/Not Resolved]
  - Nausea [Not Recovered/Not Resolved]
  - Dizziness [Not Recovered/Not Resolved]
  - Tachyphrenia [Not Recovered/Not Resolved]
